FAERS Safety Report 9210028 (Version 2)
Quarter: 2013Q2

REPORT INFORMATION
  Report Type: Spontaneous
  Country: GB (occurrence: GB)
  Receive Date: 20130404
  Receipt Date: 20130417
  Transmission Date: 20140414
  Serious: Yes (Hospitalization, Other)
  Sender: FDA-Public Use
  Company Number: GB-PFIZER INC-GB-WYE-H02014008

PATIENT
  Age: 7 Year
  Sex: Female
  Weight: 30 kg

DRUGS (10)
  1. IBUPROFEN [Suspect]
     Indication: ABDOMINAL PAIN
     Dosage: 150 MG, UNK
     Route: 048
     Dates: start: 20041204
  2. DICLOFENAC [Suspect]
     Indication: ANALGESIC THERAPY
     Dosage: 25 MG (0.83 MG/KG)
     Route: 054
  3. DICLOFENAC [Suspect]
     Indication: ABDOMINAL PAIN
     Route: 054
     Dates: start: 20041202, end: 20041202
  4. INDOMETHACIN [Suspect]
  5. CEFTRIAXONE [Concomitant]
     Indication: URINARY TRACT INFECTION
     Route: 042
  6. CEFTRIAXONE [Concomitant]
     Dosage: 2.4 G, UNK
     Route: 042
     Dates: start: 20041203, end: 20041203
  7. NIFEDIPINE [Concomitant]
     Indication: HYPERTENSION
  8. ONDANSETRON [Concomitant]
     Indication: VOMITING
     Dosage: 3 MG, UNK
     Route: 042
     Dates: start: 20041203, end: 20041203
  9. PARACETAMOL [Concomitant]
     Indication: PYREXIA
     Dosage: 450 MG, UNK
     Route: 048
     Dates: start: 20041202, end: 20041202
  10. PARACETAMOL [Concomitant]
     Dosage: 1 G, UNK
     Route: 054
     Dates: start: 20041202, end: 20041204

REACTIONS (7)
  - Renal failure acute [Recovered/Resolved]
  - Renal tubular necrosis [Recovered/Resolved]
  - Hypertension [Recovered/Resolved]
  - Abdominal pain [Unknown]
  - Vomiting [Unknown]
  - Diarrhoea [Unknown]
  - Pyrexia [Unknown]
